FAERS Safety Report 10256716 (Version 1)
Quarter: 2014Q2

REPORT INFORMATION
  Report Type: Report from Study
  Country: AT (occurrence: AT)
  Receive Date: 20140624
  Receipt Date: 20140624
  Transmission Date: 20141212
  Serious: Yes (Hospitalization)
  Sender: FDA-Public Use
  Company Number: AT-JNJFOC-20140210345

PATIENT
  Age: 78 Year
  Sex: Male
  Weight: 75 kg

DRUGS (15)
  1. XARELTO [Suspect]
     Indication: ATRIAL FIBRILLATION
     Route: 065
     Dates: start: 20130718
  2. XARELTO [Suspect]
     Indication: THROMBOSIS PROPHYLAXIS
     Route: 065
     Dates: start: 20130718
  3. XARELTO [Suspect]
     Indication: CEREBROVASCULAR ACCIDENT PROPHYLAXIS
     Route: 065
     Dates: start: 20130718
  4. DILATREND [Concomitant]
     Route: 065
  5. INDAPAMID [Concomitant]
     Route: 065
  6. CO-DILATREND [Concomitant]
     Route: 065
  7. DIPHTHERIA AND TETANUS TOXOIDS [Concomitant]
     Route: 065
     Dates: start: 20130830, end: 20130830
  8. CIPRALEX [Concomitant]
     Route: 065
  9. CIPRALEX [Concomitant]
     Route: 065
     Dates: start: 20130731
  10. THROMBO ASS [Concomitant]
     Route: 065
     Dates: end: 20130725
  11. ADVANTAN [Concomitant]
     Route: 065
     Dates: start: 20130819, end: 20130825
  12. FRAGMIN [Concomitant]
     Route: 065
     Dates: start: 201306, end: 20130717
  13. TRITACE [Concomitant]
     Route: 065
  14. TERBINAFINE HYDROCHLORIDE [Concomitant]
     Indication: PRODUCT USED FOR UNKNOWN INDICATION
     Route: 065
     Dates: start: 20130805
  15. CIPRALEX [Concomitant]
     Route: 065
     Dates: start: 20130731

REACTIONS (1)
  - Transient ischaemic attack [Recovered/Resolved]
